FAERS Safety Report 9624269 (Version 1)
Quarter: 2013Q4

REPORT INFORMATION
  Report Type: Spontaneous
  Country: BR (occurrence: BR)
  Receive Date: 20131015
  Receipt Date: 20131015
  Transmission Date: 20140711
  Serious: Yes (Other)
  Sender: FDA-Public Use
  Company Number: BR-VERTEX PHARMACEUTICALS INC-2013-010382

PATIENT
  Age: 51 Year
  Sex: Female
  Weight: 65 kg

DRUGS (4)
  1. INCIVO [Suspect]
     Indication: HEPATITIS C
     Dosage: 3 DF, BID
     Route: 048
     Dates: start: 20131008
  2. INTERFERON [Concomitant]
     Indication: HEPATITIS C
     Dosage: DOSAGE FORM: UNKNOWN
     Route: 058
  3. RIBAVIRIN [Concomitant]
     Indication: HEPATITIS C
     Dosage: 2 DF, UNK
     Route: 065
  4. LEVOTHYROXINE [Concomitant]
     Route: 065

REACTIONS (6)
  - Pyrexia [Not Recovered/Not Resolved]
  - Headache [Not Recovered/Not Resolved]
  - Pain [Not Recovered/Not Resolved]
  - Renal pain [Not Recovered/Not Resolved]
  - Pruritus [Recovered/Resolved]
  - Skin irritation [Unknown]
